FAERS Safety Report 16037326 (Version 1)
Quarter: 2019Q1

REPORT INFORMATION
  Report Type: Report from Study
  Country: ES (occurrence: ES)
  Receive Date: 20190305
  Receipt Date: 20190305
  Transmission Date: 20190418
  Serious: Yes (Hospitalization)
  Sender: FDA-Public Use
  Company Number: ES-TEVA-2019-ES-1018410

PATIENT
  Age: 46 Year
  Sex: Female

DRUGS (1)
  1. CIPROFLOXACINO (2049A) [Suspect]
     Active Substance: CIPROFLOXACIN
     Indication: PYELONEPHRITIS ACUTE
     Dosage: 1000 MILLIGRAM DAILY;
     Route: 048
     Dates: start: 20141211, end: 20141222

REACTIONS (1)
  - Drug reaction with eosinophilia and systemic symptoms [Recovered/Resolved]

NARRATIVE: CASE EVENT DATE: 20141220
